FAERS Safety Report 8784391 (Version 2)
Quarter: 2012Q4

REPORT INFORMATION
  Report Type: 
  Country: CA (occurrence: CA)
  Receive Date: 20120913
  Receipt Date: 20120925
  Transmission Date: 20130627
  Serious: Yes (Hospitalization)
  Sender: FDA-Public Use
  Company Number: CA-AMGEN-CANSP2012057498

PATIENT
  Age: 82 Year
  Sex: Female

DRUGS (7)
  1. PROLIA [Suspect]
     Indication: OSTEOPOROSIS
     Dosage: 60 mg, q6mo
     Route: 058
     Dates: start: 201101
  2. PROLIA [Suspect]
     Dosage: 60 mg, q6mo
     Route: 058
     Dates: start: 201101
  3. SYNTHROID [Concomitant]
  4. COZAAR [Concomitant]
  5. CARTIA                             /00002701/ [Concomitant]
  6. PLAVIX [Concomitant]
  7. ADALAT [Concomitant]

REACTIONS (1)
  - Wrist fracture [Unknown]
